FAERS Safety Report 4540359-8 (Version None)
Quarter: 2004Q4

REPORT INFORMATION
  Report Type: 
  Country: None (occurrence: None)
  Receive Date: 20041223
  Receipt Date: 20041215
  Transmission Date: 20050328
  Serious: Yes (Hospitalization, Other)
  Sender: FDA-Public Use
  Company Number: 2004112433

PATIENT
  Age: 68 Year
  Sex: Male

DRUGS (4)
  1. FLUCONAZOLE [Suspect]
     Indication: ILL-DEFINED DISORDER
     Dosage: 1 IN 1 D, ORAL
     Route: 048
     Dates: start: 20021201
  2. ZIDOVUDINE W/LAMIVUDINE (LAMIVUDINE, ZIDOVUDINE) [Suspect]
     Indication: HIV INFECTION
     Dosage: 2 IN 1 D,ORAL
     Route: 048
     Dates: start: 20021201
  3. KALETRA [Suspect]
     Indication: HIV INFECTION
     Dosage: 1 IN 1 D, ORAL
     Route: 048
     Dates: start: 20021201
  4. TENOFOVIR DISOPROXIL FUMARATE (TENOFOVIR DISOPROXIL FUMARATE) [Suspect]
     Indication: HIV INFECTION
     Dosage: 1 IN 1 D, ORAL
     Route: 048
     Dates: start: 20021201

REACTIONS (14)
  - ANGINA UNSTABLE [None]
  - BLOOD TRIGLYCERIDES INCREASED [None]
  - BRAIN SCAN ABNORMAL [None]
  - CAROTID ARTERY STENOSIS [None]
  - CD4 LYMPHOCYTES ABNORMAL [None]
  - CHEST PAIN [None]
  - CORONARY ARTERY STENOSIS [None]
  - DILATATION VENTRICULAR [None]
  - EJECTION FRACTION DECREASED [None]
  - HEMIPARESIS [None]
  - MOTOR DYSFUNCTION [None]
  - SYPHILIS TEST POSITIVE [None]
  - TRANSIENT ISCHAEMIC ATTACK [None]
  - TROPONIN INCREASED [None]
